FAERS Safety Report 15544045 (Version 1)
Quarter: 2018Q4

REPORT INFORMATION
  Report Type: Spontaneous
  Country: US (occurrence: US)
  Receive Date: 20181023
  Receipt Date: 20181023
  Transmission Date: 20190205
  Serious: Yes (Other)
  Sender: FDA-Public Use
  Company Number: US-NAPPMUNDI-USA-2004-0015032

PATIENT
  Age: 19 Year
  Sex: Male

DRUGS (2)
  1. OXYCONTIN [Suspect]
     Active Substance: OXYCODONE HYDROCHLORIDE
     Indication: PRODUCT USED FOR UNKNOWN INDICATION
     Route: 048
  2. HEROIN [Suspect]
     Active Substance: DIAMORPHINE
     Indication: PRODUCT USED FOR UNKNOWN INDICATION
     Dosage: UNK UNK, UNK
     Route: 065

REACTIONS (8)
  - Fatigue [Recovering/Resolving]
  - Weight decreased [Unknown]
  - Feeling hot [Recovered/Resolved]
  - Overdose [Recovered/Resolved]
  - Substance dependence [Recovered/Resolved]
  - Euphoric mood [Recovering/Resolving]
  - Substance abuse [Recovered/Resolved]
  - Malaise [Recovering/Resolving]
